FAERS Safety Report 7303428-5 (Version None)
Quarter: 2011Q1

REPORT INFORMATION
  Report Type: 
  Country: None (occurrence: None)
  Receive Date: 20110221
  Receipt Date: 20110208
  Transmission Date: 20110831
  Serious: Yes (Other)
  Sender: FDA-Public Use
  Company Number: US-ELI_LILLY_AND_COMPANY-US201102002380

PATIENT
  Sex: Male

DRUGS (1)
  1. FORTEO [Suspect]
     Indication: SPINAL FRACTURE
     Dosage: UNK, UNKNOWN
     Dates: start: 20100201

REACTIONS (2)
  - SPINAL FRACTURE [None]
  - BLOOD ALKALINE PHOSPHATASE INCREASED [None]
